FAERS Safety Report 10370801 (Version 1)
Quarter: 2014Q3

REPORT INFORMATION
  Report Type: Spontaneous
  Country: US (occurrence: None)
  Receive Date: 20140806
  Receipt Date: 20140806
  Transmission Date: 20150326
  Serious: Yes (Hospitalization, Other)
  Sender: FDA-Public Use
  Company Number: DAV-AE-MTX-14-34

PATIENT
  Age: 66 Year
  Sex: Female

DRUGS (3)
  1. LEUCOVORIN [Concomitant]
     Active Substance: LEUCOVORIN
  2. METHOTREXATE [Suspect]
     Active Substance: METHOTREXATE
     Indication: DIFFUSE LARGE B-CELL LYMPHOMA
     Dosage: 3 CYCLES
  3. R-CHOP THERAPY [Concomitant]

REACTIONS (7)
  - Aspartate aminotransferase increased [None]
  - Alanine aminotransferase increased [None]
  - Toxicity to various agents [None]
  - Blood creatinine increased [None]
  - Mental status changes [None]
  - Pancytopenia [None]
  - Reticulocyte count decreased [None]
